FAERS Safety Report 12698710 (Version 1)
Quarter: 2016Q3

REPORT INFORMATION
  Report Type: Spontaneous
  Country: CH (occurrence: CH)
  Receive Date: 20160830
  Receipt Date: 20160830
  Transmission Date: 20161109
  Serious: Yes (Death, Hospitalization, Other)
  Sender: FDA-Public Use
  Company Number: PHHY2016CH116998

PATIENT
  Age: 60 Year
  Sex: Female

DRUGS (2)
  1. AFINITOR [Suspect]
     Active Substance: EVEROLIMUS
     Indication: NEUROENDOCRINE TUMOUR
     Dosage: 5 OR 10 MG QD
     Route: 065
     Dates: start: 201501, end: 201505
  2. SANDOSTATIN LAR DEPOT [Suspect]
     Active Substance: OCTREOTIDE ACETATE
     Indication: NEUROENDOCRINE TUMOUR
     Dosage: UNK
     Route: 065
     Dates: start: 201307

REACTIONS (9)
  - Melaena [Unknown]
  - Flushing [Unknown]
  - Multiple organ dysfunction syndrome [Unknown]
  - Small intestinal haemorrhage [Unknown]
  - Diarrhoea [Unknown]
  - Malignant neoplasm progression [Fatal]
  - Ascites [Unknown]
  - Neuroendocrine tumour [Fatal]
  - Septic shock [Unknown]

NARRATIVE: CASE EVENT DATE: 201407
